FAERS Safety Report 16892888 (Version 1)
Quarter: 2019Q4

REPORT INFORMATION
  Report Type: Spontaneous
  Country: CA (occurrence: CA)
  Receive Date: 20191007
  Receipt Date: 20191007
  Transmission Date: 20200122
  Serious: Yes (Other)
  Sender: FDA-Public Use
  Company Number: CA-HLSUS-2019-CA-001296

PATIENT
  Age: 54 Year
  Sex: Female

DRUGS (6)
  1. ATROPINE. [Concomitant]
     Active Substance: ATROPINE
  2. CLONAZEPAM. [Concomitant]
     Active Substance: CLONAZEPAM
     Route: 061
  3. HALOPERIDOL. [Concomitant]
     Active Substance: HALOPERIDOL
  4. CLOZAPINE. [Suspect]
     Active Substance: CLOZAPINE
     Indication: SCHIZOPHRENIA
     Dosage: 312.5 MG
     Route: 048
  5. SERTRALINE [Concomitant]
     Active Substance: SERTRALINE HYDROCHLORIDE
  6. RISPERIDONE. [Concomitant]
     Active Substance: RISPERIDONE

REACTIONS (6)
  - Blood creatine phosphokinase increased [Unknown]
  - Myositis [Unknown]
  - C-reactive protein increased [Unknown]
  - Orthostatic hypotension [Unknown]
  - Myocarditis [Unknown]
  - Tachycardia [Unknown]
